FAERS Safety Report 11326143 (Version 3)
Quarter: 2015Q3

REPORT INFORMATION
  Report Type: Report from Study
  Country: CN (occurrence: CN)
  Receive Date: 20150731
  Receipt Date: 20150813
  Transmission Date: 20151125
  Serious: Yes (Life-Threatening, Hospitalization)
  Sender: FDA-Public Use
  Company Number: CN-BAYER-2015-389499

PATIENT
  Age: 53 Year
  Sex: Male
  Weight: 56 kg

DRUGS (13)
  1. UBENIMEX [Concomitant]
     Active Substance: UBENIMEX
     Indication: PROPHYLAXIS
     Dosage: 10MG, TID, 10D/MONTH
     Route: 048
     Dates: start: 20141023, end: 20150322
  2. ERYTHROPOIETIN [Concomitant]
     Active Substance: ERYTHROPOIETIN
     Indication: ANAEMIA
     Dosage: 6000 IU, QD
     Route: 042
     Dates: start: 20150707, end: 20150715
  3. OXYCONTIN [Concomitant]
     Active Substance: OXYCODONE HYDROCHLORIDE
     Dosage: 40 MG, UNK
     Route: 048
     Dates: start: 20150713
  4. MEGESTROL [Concomitant]
     Active Substance: MEGESTROL
     Indication: DECREASED APPETITE
     Dosage: 160 MG, QD
     Route: 048
     Dates: start: 20150713
  5. PREDNISON [Concomitant]
     Active Substance: PREDNISONE
     Indication: NEOPLASM MALIGNANT
     Dosage: 10 MG, QD
     Route: 048
     Dates: start: 20150729
  6. RADIUM-223 DICHLORIDE [Suspect]
     Active Substance: RADIUM RA-223 DICHLORIDE
     Indication: HORMONE-REFRACTORY PROSTATE CANCER
     Dosage: 5.7ML (2.75MBQ)
     Route: 042
     Dates: start: 20150608, end: 20150608
  7. CELECOXIB. [Concomitant]
     Active Substance: CELECOXIB
     Dosage: 200 MG, QD
     Route: 048
     Dates: start: 20150504, end: 20150607
  8. TYLOX [OXYCODONE HYDROCHLORIDE,OXYCODONE TEREPHTHALATE,PARACETAMOL [Concomitant]
     Dosage: 330 MG, TID
     Route: 048
     Dates: start: 20150608
  9. LOSEC [Concomitant]
     Active Substance: OMEPRAZOLE
     Indication: PROPHYLAXIS AGAINST GASTROINTESTINAL ULCER
     Dosage: 20 MG, QD
     Route: 048
     Dates: start: 20150729
  10. ZOLEDRONIC ACID [Concomitant]
     Active Substance: ZOLEDRONIC ACID
     Indication: PROPHYLAXIS
     Dosage: 4 MG, Q28D
     Route: 042
     Dates: start: 20140819, end: 20150312
  11. POLYSACCHARIDE IRON [Concomitant]
     Indication: ANAEMIA
     Dosage: 0.15 G, BID
     Route: 048
     Dates: start: 20150707
  12. RADIUM-223 DICHLORIDE [Suspect]
     Active Substance: RADIUM RA-223 DICHLORIDE
     Indication: METASTASES TO BONE
  13. THYMOPENTIN [Concomitant]
     Active Substance: THYMOPENTIN
     Indication: IMMUNE ENHANCEMENT THERAPY
     Dosage: 1MG, Q4D
     Route: 042
     Dates: start: 20141023, end: 20150322

REACTIONS (1)
  - Anaemia [Recovering/Resolving]

NARRATIVE: CASE EVENT DATE: 20150727
